FAERS Safety Report 4305995-2 (Version None)
Quarter: 2004Q1

REPORT INFORMATION
  Report Type: 
  Country: None (occurrence: None)
  Receive Date: 20040227
  Receipt Date: 20040219
  Transmission Date: 20041129
  Serious: Yes (Disabling, Other)
  Sender: FDA-Public Use
  Company Number: 200412435GDDC

PATIENT
  Age: 51 Year
  Sex: Female
  Weight: 66 kg

DRUGS (6)
  1. TAXOTERE [Suspect]
     Indication: BREAST CANCER METASTATIC
     Dosage: DOSE: VARIED
     Route: 042
     Dates: start: 20030401, end: 20030801
  2. ARIMIDEX [Suspect]
     Indication: BREAST CANCER METASTATIC
     Route: 048
     Dates: start: 20030501
  3. VENLAFAXINE HCL [Concomitant]
     Indication: DEPRESSION
     Route: 048
     Dates: start: 20010101
  4. THYROXINE [Concomitant]
     Indication: HYPOTHYROIDISM
     Route: 048
     Dates: start: 20010101
  5. ZOMETA [Concomitant]
     Indication: PROPHYLAXIS
     Route: 042
  6. BONEFOS [Concomitant]
     Route: 048
     Dates: start: 20030401, end: 20030901

REACTIONS (3)
  - PERIPHERAL ISCHAEMIA [None]
  - RETINAL HAEMORRHAGE [None]
  - VITREOUS HAEMORRHAGE [None]
